FAERS Safety Report 26145010 (Version 1)
Quarter: 2025Q4

REPORT INFORMATION
  Report Type: Spontaneous
  Country: US (occurrence: US)
  Receive Date: 20251211
  Receipt Date: 20251211
  Transmission Date: 20260118
  Serious: Yes (Hospitalization)
  Sender: TRAVERE THERAPEUTICS
  Company Number: US-TRAVERE-2025TVT02313

PATIENT
  Sex: Female

DRUGS (10)
  1. FILSPARI [Suspect]
     Active Substance: SPARSENTAN
     Indication: IgA nephropathy
     Route: 048
     Dates: start: 202510, end: 20251018
  2. FILSPARI [Suspect]
     Active Substance: SPARSENTAN
     Route: 048
     Dates: start: 202510, end: 202511
  3. FIORICET [Concomitant]
     Active Substance: ACETAMINOPHEN\BUTALBITAL\CAFFEINE
  4. JARDIANCE [Concomitant]
     Active Substance: EMPAGLIFLOZIN
  5. LOSARTAN [Concomitant]
     Active Substance: LOSARTAN
  6. METOPROLOL [Concomitant]
     Active Substance: METOPROLOL
  7. NIFEDIPINE [Concomitant]
     Active Substance: NIFEDIPINE
  8. SPIRONOLACTONE [Concomitant]
     Active Substance: SPIRONOLACTONE
  9. AMBIEN [Concomitant]
     Active Substance: ZOLPIDEM TARTRATE
  10. ALBUTEROL SULFATE [Concomitant]
     Active Substance: ALBUTEROL SULFATE

REACTIONS (3)
  - Colitis [Unknown]
  - Protein total increased [Unknown]
  - Contraindicated product administered [Unknown]
